FAERS Safety Report 5875115-1 (Version None)
Quarter: 2008Q3

REPORT INFORMATION
  Report Type: 
  Country: None (occurrence: None)
  Receive Date: 20080909
  Receipt Date: 20080903
  Transmission Date: 20090109
  Serious: Yes (Death)
  Sender: FDA-Public Use
  Company Number: A0746424A

PATIENT
  Age: 68 Year
  Weight: 55 kg

DRUGS (3)
  1. SERETIDE [Suspect]
     Route: 055
     Dates: start: 20070701, end: 20071112
  2. BEROTEC [Concomitant]
     Dates: start: 19900101, end: 20071112
  3. FRANOL [Concomitant]
     Dates: start: 19900101, end: 20071112

REACTIONS (1)
  - MULTI-ORGAN FAILURE [None]
